FAERS Safety Report 7066224-2 (Version None)
Quarter: 2010Q4

REPORT INFORMATION
  Report Type: 
  Country: None (occurrence: None)
  Receive Date: 20101027
  Receipt Date: 20100315
  Transmission Date: 20110411
  Serious: Yes (Other)
  Sender: FDA-Public Use
  Company Number: HQWYE634814JAN05

PATIENT
  Sex: Female
  Weight: 63.56 kg

DRUGS (5)
  1. PREMPRO [Suspect]
     Dosage: 0.625MG/2.5MG
     Route: 048
     Dates: start: 19850101, end: 19850101
  2. MEDROXYPROGESTERONE ACETATE [Suspect]
  3. ESTROGENS [Suspect]
  4. PREMARIN [Suspect]
     Dosage: UNKNOWN
     Route: 048
     Dates: start: 19850101, end: 19950101
  5. PROVERA [Suspect]

REACTIONS (1)
  - BREAST CANCER [None]
